FAERS Safety Report 20508197 (Version 1)
Quarter: 2022Q1

REPORT INFORMATION
  Report Type: Spontaneous
  Country: US (occurrence: US)
  Receive Date: 20220223
  Receipt Date: 20220223
  Transmission Date: 20220424
  Serious: Yes (Other)
  Sender: FDA-Public Use
  Company Number: US-GLAXOSMITHKLINE-US2022GSK029403

PATIENT
  Sex: Female

DRUGS (14)
  1. ZANTAC [Suspect]
     Active Substance: RANITIDINE HYDROCHLORIDE
     Indication: Helicobacter infection
     Dosage: UNK UNK, QD
     Route: 065
     Dates: start: 201001, end: 202012
  2. ZANTAC [Suspect]
     Active Substance: RANITIDINE HYDROCHLORIDE
     Indication: Dyspepsia
  3. ZANTAC [Suspect]
     Active Substance: RANITIDINE HYDROCHLORIDE
     Indication: Helicobacter infection
     Dosage: UNK UNK, QD
     Route: 065
     Dates: start: 201001, end: 202012
  4. ZANTAC [Suspect]
     Active Substance: RANITIDINE HYDROCHLORIDE
     Indication: Dyspepsia
  5. ZANTAC [Suspect]
     Active Substance: RANITIDINE HYDROCHLORIDE
     Indication: Helicobacter infection
     Dosage: UNK UNK, QD
     Route: 065
     Dates: start: 201001, end: 202012
  6. ZANTAC [Suspect]
     Active Substance: RANITIDINE HYDROCHLORIDE
     Indication: Dyspepsia
  7. RANITIDINE [Suspect]
     Active Substance: RANITIDINE
     Indication: Helicobacter infection
     Dosage: UNK UNK, QD
     Route: 065
     Dates: start: 201001, end: 202012
  8. RANITIDINE [Suspect]
     Active Substance: RANITIDINE
     Indication: Dyspepsia
  9. RANITIDINE [Suspect]
     Active Substance: RANITIDINE
     Indication: Helicobacter infection
     Dosage: UNK, QD
     Route: 065
     Dates: start: 201001, end: 202012
  10. RANITIDINE [Suspect]
     Active Substance: RANITIDINE
     Indication: Dyspepsia
  11. RANITIDINE [Suspect]
     Active Substance: RANITIDINE
     Indication: Helicobacter infection
     Dosage: UNK, QD
     Route: 065
     Dates: start: 201001, end: 202012
  12. RANITIDINE [Suspect]
     Active Substance: RANITIDINE
     Indication: Dyspepsia
  13. RANITIDINE [Suspect]
     Active Substance: RANITIDINE
     Indication: Helicobacter infection
     Dosage: UNK, QD
     Route: 065
     Dates: start: 201001, end: 202012
  14. RANITIDINE [Suspect]
     Active Substance: RANITIDINE
     Indication: Dyspepsia

REACTIONS (1)
  - Breast cancer [Unknown]
